FAERS Safety Report 12083354 (Version 1)
Quarter: 2016Q1

REPORT INFORMATION
  Report Type: Spontaneous
  Country: US (occurrence: None)
  Receive Date: 20160216
  Receipt Date: 20160216
  Transmission Date: 20160526
  Serious: Yes (Disabling)
  Sender: FDA-Public Use
  Company Number: None

PATIENT
  Age: 52 Year
  Sex: Male
  Weight: 97.07 kg

DRUGS (3)
  1. GLYXAMBI [Suspect]
     Active Substance: EMPAGLIFLOZIN\LINAGLIPTIN
     Indication: TYPE 2 DIABETES MELLITUS
     Dosage: 25 MG + 10 MG 1 PILL 1X PER DAY?ONCE DAILY ?TAKEN BY MOUTH
     Route: 048
     Dates: start: 20160201, end: 20160206
  2. INSULIN [Concomitant]
     Active Substance: INSULIN NOS
  3. BABY ASPIRIN [Concomitant]
     Active Substance: ASPIRIN

REACTIONS (6)
  - Nausea [None]
  - Vision blurred [None]
  - Dizziness [None]
  - Asthenia [None]
  - Abdominal pain upper [None]
  - Vomiting [None]

NARRATIVE: CASE EVENT DATE: 20160206
